FAERS Safety Report 4355993-8 (Version None)
Quarter: 2004Q2

REPORT INFORMATION
  Report Type: 
  Country: None (occurrence: None)
  Receive Date: 20040507
  Receipt Date: 20040507
  Transmission Date: 20050107
  Serious: Yes (Hospitalization)
  Sender: FDA-Public Use
  Company Number: None

PATIENT
  Age: 76 Year
  Sex: Male
  Weight: 103 kg

DRUGS (4)
  1. WARFARIN SODIUM [Suspect]
  2. GEMFIBROZIL [Suspect]
  3. ASPIRIN [Suspect]
  4. CLOPIDOGREL BISULFATE [Suspect]
     Dosage: 300 MG PO
     Route: 048
     Dates: start: 20030905, end: 20030905

REACTIONS (1)
  - DRUG TOXICITY [None]
